FAERS Safety Report 9377494 (Version 15)
Quarter: 2014Q2

REPORT INFORMATION
  Report Type: Spontaneous
  Country: US (occurrence: US)
  Receive Date: 20130701
  Receipt Date: 20140625
  Transmission Date: 20141212
  Serious: Yes (Other)
  Sender: FDA-Public Use
  Company Number: US-PFIZER INC-2013192874

PATIENT
  Age: 58 Year
  Sex: Female
  Weight: 94 kg

DRUGS (9)
  1. LIPITOR [Suspect]
     Indication: LOW DENSITY LIPOPROTEIN INCREASED
     Dosage: 10 MG, 1X/DAY
     Route: 048
     Dates: start: 2000
  2. LIPITOR [Suspect]
     Indication: CARDIOVASCULAR EVENT PROPHYLAXIS
  3. LIPITOR [Suspect]
     Indication: BLOOD CHOLESTEROL INCREASED
  4. TOPROL XL [Concomitant]
     Dosage: 25 MG, DAILY
  5. PRILOSEC [Concomitant]
     Dosage: 20 MG, DAILY
  6. LEXAPRO [Concomitant]
     Dosage: 10 (UNKNOWN UNITS), DAILY
  7. ASPIRINE [Concomitant]
     Dosage: 81 MG, DAILY
  8. PROZAC [Concomitant]
     Dosage: UNK
  9. TRAZODONE [Concomitant]
     Dosage: UNK

REACTIONS (2)
  - Type 2 diabetes mellitus [Not Recovered/Not Resolved]
  - Hypothyroidism [Not Recovered/Not Resolved]
